FAERS Safety Report 22351444 (Version 1)
Quarter: 2023Q2

REPORT INFORMATION
  Report Type: Spontaneous
  Country: US (occurrence: US)
  Receive Date: 20230522
  Receipt Date: 20230522
  Transmission Date: 20230721
  Serious: No
  Sender: FDA-Public Use
  Company Number: US-Stemline Therapeutics, Inc.-2023ST000670

PATIENT
  Age: 71 Year
  Sex: Female

DRUGS (41)
  1. ORSERDU [Suspect]
     Active Substance: ELACESTRANT
     Indication: Product used for unknown indication
     Route: 048
     Dates: start: 20230418
  2. calcium + vit D3 [Concomitant]
     Indication: Product used for unknown indication
     Route: 048
  3. COLACE [Concomitant]
     Active Substance: DOCUSATE SODIUM
     Indication: Product used for unknown indication
     Route: 048
  4. DEPAKOTE ER [Concomitant]
     Active Substance: DIVALPROEX SODIUM
     Indication: Product used for unknown indication
     Route: 048
  5. GABAPENTIN [Concomitant]
     Active Substance: GABAPENTIN
     Indication: Product used for unknown indication
     Route: 048
  6. GABAPENTIN [Concomitant]
     Active Substance: GABAPENTIN
     Route: 048
  7. GABAPENTIN [Concomitant]
     Active Substance: GABAPENTIN
     Route: 048
  8. GlucosamineChondroitin Max [Concomitant]
     Indication: Product used for unknown indication
     Route: 048
  9. GlucosamineChondroitin Max [Concomitant]
     Route: 048
  10. LORAZEPAM [Concomitant]
     Active Substance: LORAZEPAM
     Indication: Product used for unknown indication
     Route: 048
  11. LORAZEPAM [Concomitant]
     Active Substance: LORAZEPAM
     Route: 048
  12. LORAZEPAM [Concomitant]
     Active Substance: LORAZEPAM
     Route: 048
  13. LORAZEPAM [Concomitant]
     Active Substance: LORAZEPAM
     Route: 048
  14. LUNESTA [Concomitant]
     Active Substance: ESZOPICLONE
     Indication: Product used for unknown indication
     Route: 048
  15. LUNESTA [Concomitant]
     Active Substance: ESZOPICLONE
     Route: 048
  16. LUNESTA [Concomitant]
     Active Substance: ESZOPICLONE
     Route: 048
  17. LUNESTA [Concomitant]
     Active Substance: ESZOPICLONE
     Route: 048
  18. MIRAPEX [Concomitant]
     Active Substance: PRAMIPEXOLE DIHYDROCHLORIDE
     Indication: Product used for unknown indication
     Route: 048
  19. MIRAPEX [Concomitant]
     Active Substance: PRAMIPEXOLE DIHYDROCHLORIDE
     Route: 048
  20. MIRAPEX [Concomitant]
     Active Substance: PRAMIPEXOLE DIHYDROCHLORIDE
     Route: 048
  21. MIRAPEX [Concomitant]
     Active Substance: PRAMIPEXOLE DIHYDROCHLORIDE
     Route: 048
  22. CRANBERRY [Concomitant]
     Active Substance: CRANBERRY
     Indication: Product used for unknown indication
     Route: 048
  23. CRANBERRY [Concomitant]
     Active Substance: CRANBERRY
     Route: 048
  24. CRANBERRY [Concomitant]
     Active Substance: CRANBERRY
     Route: 048
  25. CRANBERRY [Concomitant]
     Active Substance: CRANBERRY
     Route: 048
  26. SENNA LAXATIVE [Concomitant]
     Active Substance: SENNOSIDES
     Indication: Product used for unknown indication
     Route: 048
  27. SENNA LAXATIVE [Concomitant]
     Active Substance: SENNOSIDES
     Route: 048
  28. SENNA LAXATIVE [Concomitant]
     Active Substance: SENNOSIDES
     Route: 048
  29. SENNA LAXATIVE [Concomitant]
     Active Substance: SENNOSIDES
     Route: 048
  30. TYLENOL EXTRA STRENGTH [Concomitant]
     Active Substance: ACETAMINOPHEN
     Indication: Product used for unknown indication
     Route: 048
  31. TYLENOL EXTRA STRENGTH [Concomitant]
     Active Substance: ACETAMINOPHEN
     Route: 048
  32. TYLENOL EXTRA STRENGTH [Concomitant]
     Active Substance: ACETAMINOPHEN
     Route: 048
  33. TYLENOL EXTRA STRENGTH [Concomitant]
     Active Substance: ACETAMINOPHEN
     Route: 048
  34. VITAMIN B12 [Concomitant]
     Active Substance: CYANOCOBALAMIN
     Indication: Product used for unknown indication
     Route: 048
  35. VITAMIN B12 [Concomitant]
     Active Substance: CYANOCOBALAMIN
     Route: 048
  36. VITAMIN B12 [Concomitant]
     Active Substance: CYANOCOBALAMIN
     Route: 048
  37. VITAMIN B12 [Concomitant]
     Active Substance: CYANOCOBALAMIN
     Route: 048
  38. XARELTO [Concomitant]
     Active Substance: RIVAROXABAN
     Indication: Product used for unknown indication
     Route: 048
  39. XARELTO [Concomitant]
     Active Substance: RIVAROXABAN
     Route: 048
  40. XARELTO [Concomitant]
     Active Substance: RIVAROXABAN
     Route: 048
  41. XARELTO [Concomitant]
     Active Substance: RIVAROXABAN
     Route: 048

REACTIONS (3)
  - Constipation [Not Recovered/Not Resolved]
  - Restless legs syndrome [Unknown]
  - Muscle spasms [Unknown]

NARRATIVE: CASE EVENT DATE: 20230401
